FAERS Safety Report 12723568 (Version 6)
Quarter: 2018Q1

REPORT INFORMATION
  Report Type: Report from Study
  Country: DE (occurrence: DE)
  Receive Date: 20160908
  Receipt Date: 20180215
  Transmission Date: 20180508
  Serious: Yes (Death, Other)
  Sender: FDA-Public Use
  Company Number: DE-CELGENEUS-062-21660-13105971

PATIENT

DRUGS (1)
  1. ABRAXANE [Suspect]
     Active Substance: PACLITAXEL
     Indication: BREAST CANCER METASTATIC
     Dosage: 12.381 MILLIGRAM/SQ. METER
     Route: 041

REACTIONS (37)
  - Dyspnoea [Fatal]
  - Cardiac failure [Fatal]
  - Haemolytic anaemia [Fatal]
  - Neurotoxicity [Unknown]
  - Alopecia [Unknown]
  - Nausea [Fatal]
  - Leukocytosis [Unknown]
  - Ileus [Fatal]
  - Multiple organ dysfunction syndrome [Fatal]
  - Neutropenia [Fatal]
  - Pleural effusion [Fatal]
  - Pneumonia [Fatal]
  - Hepatic failure [Fatal]
  - Lung infection [Fatal]
  - Bronchitis [Fatal]
  - Sepsis [Fatal]
  - Neutrophil count decreased [Unknown]
  - Paraesthesia [Unknown]
  - Febrile neutropenia [Fatal]
  - Pain [Fatal]
  - Syncope [Fatal]
  - Peripheral sensory neuropathy [Fatal]
  - Leukopenia [Fatal]
  - Infection [Fatal]
  - Respiratory failure [Fatal]
  - Aortic aneurysm [Fatal]
  - Organ failure [Fatal]
  - White blood cell count decreased [Unknown]
  - Peripheral motor neuropathy [Fatal]
  - Anaemia [Fatal]
  - Fatigue [Fatal]
  - Neoplasm [Fatal]
  - Acute kidney injury [Fatal]
  - Gastrointestinal disorder [Unknown]
  - Diarrhoea [Fatal]
  - General symptom [Fatal]
  - Breast cancer [Fatal]
